FAERS Safety Report 10004285 (Version 2)
Quarter: 2014Q2

REPORT INFORMATION
  Report Type: Report from Study
  Country: US (occurrence: US)
  Receive Date: 20140312
  Receipt Date: 20140407
  Transmission Date: 20141212
  Serious: Yes (Hospitalization, Other)
  Sender: FDA-Public Use
  Company Number: PHEH2014US004853

PATIENT
  Age: 54 Year
  Sex: Female

DRUGS (14)
  1. GILENYA [Suspect]
     Indication: MULTIPLE SCLEROSIS
     Dosage: 0.5 MG, UNK
     Route: 048
  2. BUTALBITAL, ACETAMINOPHEN + CAFFEINE [Concomitant]
     Indication: HEADACHE
     Dosage: 40 MG, Q4H
     Route: 048
  3. AMITRIPTYLINE [Concomitant]
     Dosage: 50 MG, UNK
  4. BENZONATATE [Concomitant]
     Indication: COUGH
     Dosage: 200 MG, TID
     Route: 048
  5. CLONAZEPAM [Concomitant]
     Dosage: 4 MG, UNK
     Route: 048
  6. FUROSEMIDE [Concomitant]
     Dosage: 20 MG, UNK
     Route: 048
  7. HYDROCODONE/ACETAMINOPHEN          /00607101/ [Concomitant]
     Indication: PAIN
     Dosage: 5 MG, UNK
     Route: 048
  8. LEXAPRO [Concomitant]
     Dosage: 10 MG, QD
     Route: 048
  9. PANTOPRAZOLE [Concomitant]
     Dosage: 40 MG, UNK
     Route: 048
  10. POTASSIUM CHLORIDE [Concomitant]
     Route: 048
  11. RIVAROXABAN [Concomitant]
     Dosage: 20 MG, QD
     Route: 048
  12. ROSUVASTATIN [Concomitant]
     Dosage: 20 MG, QHS
     Route: 048
  13. TIZANIDINE [Concomitant]
     Dosage: 4 MG, Q6H
     Route: 048
  14. VENTOLIN HFA [Concomitant]
     Dosage: 90 UG, Q6H
     Route: 055

REACTIONS (1)
  - Cerebrovascular accident [Unknown]
